FAERS Safety Report 5271302-4 (Version None)
Quarter: 2007Q1

REPORT INFORMATION
  Report Type: 
  Country: None (occurrence: None)
  Receive Date: 20070316
  Receipt Date: 20070301
  Transmission Date: 20070707
  Serious: Yes (Other)
  Sender: FDA-Public Use
  Company Number: 238184

PATIENT
  Age: 44 Year
  Sex: Female
  Weight: 66 kg

DRUGS (4)
  1. HERCEPTIN [Suspect]
     Indication: DRUG USE FOR UNKNOWN INDICATION
     Dosage: 1
  2. VINORELBINE TARTRATE [Suspect]
     Indication: DRUG USE FOR UNKNOWN INDICATION
     Dosage: 51 MG, INTRAVENOUS
     Route: 042
  3. PAMIDRONATE DISODIUM [Concomitant]
  4. ZOLADEX [Concomitant]

REACTIONS (5)
  - DEEP VEIN THROMBOSIS [None]
  - LYMPHANGITIS [None]
  - METASTATIC NEOPLASM [None]
  - PNEUMONIA [None]
  - PULMONARY EMBOLISM [None]
